FAERS Safety Report 5898702-3 (Version None)
Quarter: 2008Q3

REPORT INFORMATION
  Report Type: 
  Country: None (occurrence: None)
  Receive Date: 20080925
  Receipt Date: 20080422
  Transmission Date: 20090109
  Serious: No
  Sender: FDA-Public Use
  Company Number: A0724115A

PATIENT
  Age: 59 Year
  Sex: Female

DRUGS (2)
  1. WELLBUTRIN XL [Suspect]
     Indication: DEPRESSION
     Dosage: 300MG PER DAY
     Route: 048
     Dates: start: 20060101, end: 20080201
  2. LEXAPRO [Concomitant]

REACTIONS (6)
  - AGITATION [None]
  - ARTHRALGIA [None]
  - HEADACHE [None]
  - LETHARGY [None]
  - VERTIGO [None]
  - WEIGHT INCREASED [None]
